FAERS Safety Report 12849136 (Version 1)
Quarter: 2016Q4

REPORT INFORMATION
  Report Type: Spontaneous
  Country: ES (occurrence: ES)
  Receive Date: 20161014
  Receipt Date: 20161014
  Transmission Date: 20170207
  Serious: Yes (Other)
  Sender: FDA-Public Use
  Company Number: ES-PFIZER INC-2016474385

PATIENT
  Age: 36 Year
  Sex: Female

DRUGS (9)
  1. SPIRONOLACTONE. [Suspect]
     Active Substance: SPIRONOLACTONE
     Indication: GITELMAN^S SYNDROME
     Dosage: 50 MG, DAILY
  2. POTASSIUM [Concomitant]
     Active Substance: POTASSIUM
     Indication: GITELMAN^S SYNDROME
     Dosage: 16 MEQ/L, DAILY
     Route: 048
  3. MAGNESIUM [Concomitant]
     Active Substance: MAGNESIUM
     Dosage: 432 MG, DAILY
     Route: 048
  4. MAGNESIUM [Concomitant]
     Active Substance: MAGNESIUM
     Dosage: 432 MG, DAILY
     Route: 048
  5. POTASSIUM [Concomitant]
     Active Substance: POTASSIUM
     Dosage: 64 MEQ/L, DAILY
     Route: 048
  6. MAGNESIUM [Concomitant]
     Active Substance: MAGNESIUM
     Dosage: 220 MG, DAILY
     Route: 048
  7. POTASSIUM [Concomitant]
     Active Substance: POTASSIUM
     Dosage: 90 MEQ/L
     Route: 048
  8. POTASSIUM [Concomitant]
     Active Substance: POTASSIUM
     Dosage: 40 MEQ/L, DAILY
     Route: 048
  9. MAGNESIUM [Concomitant]
     Active Substance: MAGNESIUM
     Indication: GITELMAN^S SYNDROME
     Dosage: 288 MG, DAILY
     Route: 048

REACTIONS (1)
  - Oligohydramnios [Unknown]
